FAERS Safety Report 5064178-1 (Version None)
Quarter: 2006Q3

REPORT INFORMATION
  Report Type: 
  Country: None (occurrence: None)
  Receive Date: 20060728
  Receipt Date: 20060410
  Transmission Date: 20061208
  Serious: No
  Sender: FDA-Public Use
  Company Number: US-GLAXOSMITHKLINE-A0601187A

PATIENT
  Age: 6 Month
  Sex: Male

DRUGS (4)
  1. ZANTAC [Suspect]
     Dosage: .6MG PER DAY
     Route: 048
     Dates: start: 20060407, end: 20060410
  2. IRON [Concomitant]
  3. SODIUM [Concomitant]
  4. DIURETIC [Concomitant]

REACTIONS (2)
  - ACCIDENTAL OVERDOSE [None]
  - BLOOD ALKALINE PHOSPHATASE INCREASED [None]
